FAERS Safety Report 4398414-1 (Version None)
Quarter: 2004Q3

REPORT INFORMATION
  Report Type: 
  Country: None (occurrence: None)
  Receive Date: 20040712
  Receipt Date: 20040702
  Transmission Date: 20050211
  Serious: Yes (Hospitalization)
  Sender: FDA-Public Use
  Company Number: 2000-BL-00059

PATIENT
  Age: 47 Year
  Sex: 0

DRUGS (5)
  1. VIRAMUNE [Suspect]
     Indication: HIV INFECTION
     Dosage: 400 MG (200 MG, BID), PO
     Route: 048
     Dates: start: 20000114
  2. HYDROXYUREA [Suspect]
     Indication: HIV INFECTION
     Dosage: 1000 MG (500 MG, BID), PO
     Route: 048
     Dates: start: 20000114, end: 20000310
  3. ZIDOVUDINE [Suspect]
     Indication: HIV INFECTION
     Dosage: 600 MG (300 MG,BID), PO
     Route: 048
     Dates: start: 20000114, end: 20000322
  4. LAMIVUDINE (LAMIVUDINE) [Concomitant]
  5. ABACAVIR (ABACAVIR) [Concomitant]

REACTIONS (1)
  - NEUTROPENIA [None]
